FAERS Safety Report 4777247-8 (Version None)
Quarter: 2005Q3

REPORT INFORMATION
  Report Type: 
  Country: None (occurrence: None)
  Receive Date: 20050915
  Receipt Date: 20050826
  Transmission Date: 20060218
  Serious: Yes (Other)
  Sender: FDA-Public Use
  Company Number: USA031049346

PATIENT
  Age: 82 Year
  Sex: Female

DRUGS (5)
  1. ZYPREXA [Suspect]
     Indication: ABNORMAL BEHAVIOUR
     Dosage: 7.5 MG DAY
  2. COUMADIN [Concomitant]
  3. DONEPEZIL HCL [Concomitant]
  4. LISINOPRIL [Concomitant]
  5. ACETAMINOPHEN [Concomitant]

REACTIONS (4)
  - DIZZINESS [None]
  - FAECALOMA [None]
  - HYPOKALAEMIA [None]
  - LEUKOCYTOCLASTIC VASCULITIS [None]
